FAERS Safety Report 6155496-4 (Version None)
Quarter: 2009Q2

REPORT INFORMATION
  Report Type: 
  Country: None (occurrence: None)
  Receive Date: 20090415
  Receipt Date: 20090408
  Transmission Date: 20091009
  Serious: Yes (Other)
  Sender: FDA-Public Use
  Company Number: PHEH2009US03064

PATIENT
  Sex: Male

DRUGS (8)
  1. EXJADE [Suspect]
     Indication: IRON OVERLOAD
     Dosage: 3125 MG, QD
     Route: 048
     Dates: start: 20080529, end: 20090317
  2. CYANOCOBALAMIN [Concomitant]
     Dosage: 1000 UNK, QD
     Route: 030
  3. AVAPRO [Concomitant]
     Dosage: 300 MG, QD
  4. CENTRUM SILVER [Concomitant]
     Dosage: 1 TAB
     Route: 048
  5. CLINDAMYCIN PHOSPHATE [Concomitant]
     Indication: RASH
     Dosage: 1% SOLUTION TO RASH TID
  6. POTASSIUM CHLORIDE [Concomitant]
     Dosage: 20 MEQ, QD
  7. PROTONIX [Concomitant]
     Dosage: 40 MG, BID
  8. ATIVAN [Concomitant]
     Dosage: 2 MG PO 30 MINUTES PRIOR TO MRI

REACTIONS (22)
  - ALANINE AMINOTRANSFERASE INCREASED [None]
  - ASPARTATE AMINOTRANSFERASE INCREASED [None]
  - BLOOD ALKALINE PHOSPHATASE INCREASED [None]
  - BLOOD BILIRUBIN INCREASED [None]
  - BLOOD BILIRUBIN UNCONJUGATED INCREASED [None]
  - BLOOD CHLORIDE DECREASED [None]
  - BLOOD CREATININE DECREASED [None]
  - BLOOD DISORDER [None]
  - BLOOD LACTATE DEHYDROGENASE INCREASED [None]
  - BLOOD POTASSIUM DECREASED [None]
  - BLOOD SODIUM DECREASED [None]
  - CARCINOEMBRYONIC ANTIGEN INCREASED [None]
  - GLOBULINS INCREASED [None]
  - HAEMATOCRIT DECREASED [None]
  - HAEMOGLOBIN DECREASED [None]
  - JAUNDICE [None]
  - LUNG NEOPLASM [None]
  - MALIGNANT NEOPLASM PROGRESSION [None]
  - PLATELET COUNT DECREASED [None]
  - PORTAL HYPERTENSION [None]
  - RETROPERITONEAL LYMPHADENOPATHY [None]
  - WHITE BLOOD CELL COUNT DECREASED [None]
